FAERS Safety Report 25610507 (Version 1)
Quarter: 2025Q3

REPORT INFORMATION
  Report Type: Report from Study
  Country: CO (occurrence: CO)
  Receive Date: 20250728
  Receipt Date: 20250728
  Transmission Date: 20251021
  Serious: Yes (Life-Threatening, Hospitalization)
  Sender: BIOCODEX
  Company Number: CO-BIOCODEX2-2025001133

PATIENT
  Age: 4 Year
  Sex: Female

DRUGS (12)
  1. DIACOMIT [Suspect]
     Active Substance: STIRIPENTOL
     Indication: Severe myoclonic epilepsy of infancy
     Dosage: 250MG MORNING AND 500MG NIGHT
     Route: 048
     Dates: start: 20250516
  2. DIACOMIT [Suspect]
     Active Substance: STIRIPENTOL
     Indication: Severe myoclonic epilepsy of infancy
     Dosage: 250MG/12HOURS
     Route: 048
     Dates: start: 20250613
  3. DIACOMIT [Suspect]
     Active Substance: STIRIPENTOL
     Indication: Severe myoclonic epilepsy of infancy
     Dosage: 250 MG EVERY 8 HOURS
     Route: 048
     Dates: start: 20250718
  4. CLOBAZAM [Concomitant]
     Active Substance: CLOBAZAM
     Indication: Severe myoclonic epilepsy of infancy
     Dosage: 10MG AM AND 5MG PM DAILY
     Route: 065
  5. CLOBAZAM [Concomitant]
     Active Substance: CLOBAZAM
     Indication: Severe myoclonic epilepsy of infancy
     Dosage: 5 MG EVERY 12 HOURS
     Route: 065
     Dates: start: 20250718
  6. CLOBAZAM [Concomitant]
     Active Substance: CLOBAZAM
     Indication: Severe myoclonic epilepsy of infancy
     Dosage: 5 MG EVERY 8 HOURS
     Route: 065
     Dates: start: 20250720
  7. VALPROIC ACID [Concomitant]
     Active Substance: VALPROIC ACID
     Indication: Severe myoclonic epilepsy of infancy
     Dosage: 375MG/12HOURS
     Route: 065
  8. LEVETIRACETAM [Concomitant]
     Active Substance: LEVETIRACETAM
     Indication: Severe myoclonic epilepsy of infancy
     Dosage: 2.5CC/8H (CURRENTLY BEING GRADUALLY SUSPENDED)
     Route: 065
  9. LEVETIRACETAM [Concomitant]
     Active Substance: LEVETIRACETAM
     Indication: Severe myoclonic epilepsy of infancy
     Dosage: IN THE WEANING PHASE, 2CC EVERY EIGHT HOURS
     Dates: start: 20250707, end: 20250715
  10. NEVIOT [Concomitant]
     Indication: Severe myoclonic epilepsy of infancy
     Dosage: 2.0CC/12H
     Route: 048
  11. NEVIOT [Concomitant]
     Indication: Severe myoclonic epilepsy of infancy
     Dosage: 1.5CC/12H
     Route: 048
  12. NEVIOT [Concomitant]
     Indication: Severe myoclonic epilepsy of infancy
     Dosage: 2 CC EVERY 12 HOURS
     Route: 048
     Dates: start: 20250720

REACTIONS (4)
  - Pyrexia [Recovered/Resolved]
  - Seizure [Recovered/Resolved]
  - Somnolence [Recovered/Resolved]
  - Hypertransaminasaemia [Recovering/Resolving]

NARRATIVE: CASE EVENT DATE: 20250516
